FAERS Safety Report 8818595 (Version 1)
Quarter: 2012Q4

REPORT INFORMATION
  Report Type: 
  Country: US (occurrence: US)
  Receive Date: 20121001
  Receipt Date: 20121001
  Transmission Date: 20130627
  Serious: No
  Sender: FDA-Public Use
  Company Number: US-PFIZER INC-2012238797

PATIENT
  Age: 63 Year
  Sex: Female
  Weight: 59.86 kg

DRUGS (3)
  1. AZITHROMYCIN [Suspect]
     Indication: TOOTH INFECTION
     Dosage: 500 mg on the first day
     Route: 048
     Dates: start: 20120922, end: 20120922
  2. AZITHROMYCIN [Suspect]
     Indication: SWELLING FACE
     Dosage: 250 mg, daily
     Route: 048
     Dates: start: 20120923, end: 20120923
  3. ADVIL [Concomitant]
     Indication: HEADACHE
     Dosage: UNK

REACTIONS (2)
  - Erythema [Not Recovered/Not Resolved]
  - Pruritus [Not Recovered/Not Resolved]
